FAERS Safety Report 11873761 (Version 1)
Quarter: 2015Q4

REPORT INFORMATION
  Report Type: Spontaneous
  Country: PT (occurrence: PT)
  Receive Date: 20151229
  Receipt Date: 20151229
  Transmission Date: 20160305
  Serious: Yes (Hospitalization, Other)
  Sender: FDA-Public Use
  Company Number: PT-AMGEN-PRTSP2015139090

PATIENT
  Age: 33 Year
  Sex: Male

DRUGS (4)
  1. EXXIV [Concomitant]
     Active Substance: ETORICOXIB
     Dosage: UNK
  2. RANTUDIL [Concomitant]
     Active Substance: ACEMETACIN
     Indication: ANKYLOSING SPONDYLITIS
     Dosage: 1 DF, 1X/DAY
  3. SALAZOPIRINA EN [Concomitant]
     Active Substance: SULFASALAZINE
     Indication: ANKYLOSING SPONDYLITIS
     Dosage: 1DF, 1X/DAY
  4. ENBREL [Suspect]
     Active Substance: ETANERCEPT
     Indication: ANKYLOSING SPONDYLITIS
     Dosage: UNK
     Route: 065
     Dates: start: 20141003, end: 20150725

REACTIONS (3)
  - Neurocysticercosis [Not Recovered/Not Resolved]
  - Loss of consciousness [Not Recovered/Not Resolved]
  - Generalised tonic-clonic seizure [Not Recovered/Not Resolved]

NARRATIVE: CASE EVENT DATE: 20150725
